FAERS Safety Report 25084614 (Version 2)
Quarter: 2025Q2

REPORT INFORMATION
  Report Type: Spontaneous
  Country: US (occurrence: US)
  Receive Date: 20250317
  Receipt Date: 20250418
  Transmission Date: 20250716
  Serious: No
  Sender: SANOFI AVENTIS
  Company Number: US-SA-2025SA076242

PATIENT
  Age: 41 Year
  Sex: Male

DRUGS (3)
  1. DUPIXENT [Suspect]
     Active Substance: DUPILUMAB
     Indication: Eosinophilic oesophagitis
     Dosage: 300 MG, QW
     Route: 058
     Dates: end: 20250306
  2. NAPROXEN [Concomitant]
     Active Substance: NAPROXEN
     Indication: Neck pain
  3. NAPROXEN [Concomitant]
     Active Substance: NAPROXEN
     Indication: Headache

REACTIONS (6)
  - Arthropathy [Unknown]
  - Aura [Unknown]
  - Vision blurred [Unknown]
  - Rash [Recovering/Resolving]
  - Arthralgia [Unknown]
  - Product dose omission issue [Unknown]

NARRATIVE: CASE EVENT DATE: 20250101
